FAERS Safety Report 15761990 (Version 1)
Quarter: 2018Q4

REPORT INFORMATION
  Report Type: Spontaneous
  Country: US (occurrence: US)
  Receive Date: 20181226
  Receipt Date: 20181226
  Transmission Date: 20190205
  Serious: Yes (Other)
  Sender: FDA-Public Use
  Company Number: US-AMGEN-USASP2018183234

PATIENT
  Sex: Female

DRUGS (1)
  1. BLINCYTO [Suspect]
     Active Substance: BLINATUMOMAB
     Indication: ACUTE LYMPHOCYTIC LEUKAEMIA
     Dosage: UNK
     Route: 065
     Dates: start: 201803, end: 20181213

REACTIONS (3)
  - Cholecystectomy [Unknown]
  - Seizure [Unknown]
  - Appendicectomy [Unknown]

NARRATIVE: CASE EVENT DATE: 2018
